FAERS Safety Report 24712869 (Version 1)
Quarter: 2024Q4

REPORT INFORMATION
  Report Type: Spontaneous
  Country: US (occurrence: None)
  Receive Date: 20241207
  Receipt Date: 20241207
  Transmission Date: 20250115
  Serious: Yes (Life-Threatening, Hospitalization, Other)
  Sender: Public
  Company Number: None

PATIENT
  Age: 36 Year
  Sex: Male

DRUGS (6)
  1. DIETARY SUPPLEMENT\HERBALS [Suspect]
     Active Substance: DIETARY SUPPLEMENT\HERBALS
  2. Famitidine [Concomitant]
  3. IBUPROFEN [Concomitant]
     Active Substance: IBUPROFEN
  4. SUMATRIPTAN [Concomitant]
     Active Substance: SUMATRIPTAN
  5. POLYETHYLENE GLYCOL 3350 [Concomitant]
     Active Substance: POLYETHYLENE GLYCOL 3350
  6. VIAGRA [Suspect]
     Active Substance: SILDENAFIL CITRATE

REACTIONS (13)
  - Product quality issue [None]
  - Dermatitis [None]
  - Alopecia [None]
  - Hyperthermia [None]
  - Dehydration [None]
  - Anorgasmia [None]
  - Migraine [None]
  - Ulcer [None]
  - Constipation [None]
  - Agitation [None]
  - Penile curvature [None]
  - Penile infection [None]
  - Ejaculation failure [None]
